FAERS Safety Report 7149530-2 (Version None)
Quarter: 2010Q4

REPORT INFORMATION
  Report Type: 
  Country: None (occurrence: None)
  Receive Date: 20101209
  Receipt Date: 20101201
  Transmission Date: 20110411
  Serious: Yes (Life-Threatening, Hospitalization)
  Sender: FDA-Public Use
  Company Number: JP-AMGEN-JPNCT2010008250

PATIENT

DRUGS (9)
  1. PANITUMUMAB [Suspect]
     Indication: COLORECTAL CANCER
     Dosage: 270 MG, Q2WK
     Route: 041
     Dates: start: 20101104, end: 20101117
  2. IRINOTECAN HYDROCHLORIDE [Concomitant]
     Indication: COLORECTAL CANCER
     Route: 041
     Dates: start: 20101104
  3. FLUOROURACIL [Concomitant]
     Indication: COLORECTAL CANCER
     Route: 040
     Dates: start: 20101104
  4. FLUOROURACIL [Concomitant]
     Route: 041
     Dates: start: 20101104
  5. CALCIUM LEVOFOLINATE [Concomitant]
     Indication: COLORECTAL CANCER
     Route: 041
     Dates: start: 20101104
  6. GASTER [Concomitant]
     Route: 042
  7. SOLU-MEDROL [Concomitant]
     Route: 042
  8. MAGNESIUM SULFATE [Concomitant]
     Route: 042
  9. DEXART [Concomitant]
     Route: 042

REACTIONS (2)
  - BLOOD CALCIUM DECREASED [None]
  - HYPOMAGNESAEMIA [None]
